FAERS Safety Report 16067171 (Version 1)
Quarter: 2019Q1

REPORT INFORMATION
  Report Type: Report from Study
  Country: US (occurrence: US)
  Receive Date: 20190313
  Receipt Date: 20190313
  Transmission Date: 20190418
  Serious: Yes (Death)
  Sender: FDA-Public Use
  Company Number: US-MYLANLABS-2019M1023311

PATIENT

DRUGS (4)
  1. DEXAMETHASONE. [Suspect]
     Active Substance: DEXAMETHASONE
     Indication: PLASMA CELL MYELOMA
     Dosage: AS A PART OF PREPARATIVE CHEMOTHERAPY FOLLOWED BY MAINTENANCE THERAPY (SCHEDULED FOR 28 DAY CYCLE)
     Route: 065
  2. THALIDOMIDE [Suspect]
     Active Substance: THALIDOMIDE
     Indication: PLASMA CELL MYELOMA
     Dosage: AS A PART OF PREPARATIVE CHEMOTHERAPY FOLLOWED BY MAINTENANCE THERAPY (SCHEDULED FOR 28 DAY CYCLE)
     Route: 065
  3. BORTEZOMIB. [Suspect]
     Active Substance: BORTEZOMIB
     Indication: PLASMA CELL MYELOMA
     Dosage: AS A PART OF PREPARATIVE CHEMOTHERAPY FOLLOWED BY MAINTENANCE THERAPY (SCHEDULED FOR 28 DAY CYCLE)
     Route: 065
  4. MELPHALAN. [Suspect]
     Active Substance: MELPHALAN
     Indication: PLASMA CELL MYELOMA
     Dosage: AS A PART OF PREPARATIVE CHEMOTHERAPY
     Route: 065

REACTIONS (1)
  - Candida sepsis [Fatal]
